FAERS Safety Report 7586418-7 (Version None)
Quarter: 2011Q2

REPORT INFORMATION
  Report Type: 
  Country: None (occurrence: None)
  Receive Date: 20110630
  Receipt Date: 20110630
  Transmission Date: 20111010
  Serious: Yes (Life-Threatening)
  Sender: FDA-Public Use
  Company Number: None

PATIENT
  Age: 50 Year
  Sex: Female
  Weight: 61.2356 kg

DRUGS (2)
  1. BYSTOLIC [Suspect]
     Indication: PALPITATIONS
     Dosage: 2.5 MG TAKE AT NIGHT
     Dates: start: 20110401
  2. BYSTOLIC [Suspect]
     Indication: HYPERTENSION
     Dosage: 2.5 MG TAKE AT NIGHT
     Dates: start: 20110401

REACTIONS (8)
  - FATIGUE [None]
  - ALOPECIA [None]
  - DIZZINESS [None]
  - NAUSEA [None]
  - GINGIVAL BLEEDING [None]
  - BLOOD PRESSURE INCREASED [None]
  - INSOMNIA [None]
  - HYPOAESTHESIA [None]
